FAERS Safety Report 7827679-6 (Version None)
Quarter: 2011Q4

REPORT INFORMATION
  Report Type: 
  Country: None (occurrence: None)
  Receive Date: 20111020
  Receipt Date: 20111017
  Transmission Date: 20120403
  Serious: Yes (Other)
  Sender: FDA-Public Use
  Company Number: PHHY2011US01196

PATIENT
  Sex: Female
  Weight: 114.29 kg

DRUGS (10)
  1. TYLENOL-500 [Concomitant]
  2. EXTAVIA [Suspect]
     Indication: MULTIPLE SCLEROSIS
     Dosage: 0.25 MG, QOD
     Route: 058
     Dates: start: 20101122
  3. DIURETICS [Concomitant]
     Indication: HYPERTENSION
  4. SERTRALINE HYDROCHLORIDE [Concomitant]
  5. EXTAVIA [Suspect]
     Dosage: 0.25 MG, QOD
     Route: 058
     Dates: start: 20110101
  6. FUROSEMIDE [Concomitant]
     Dosage: UNK UKN, UNK
  7. ALBUTEROL [Concomitant]
  8. EXTAVIA [Suspect]
     Dosage: 0.062 MG, QOD
     Route: 058
     Dates: start: 20101231
  9. BACLOFEN [Concomitant]
     Route: 048
  10. LEVOXYL [Concomitant]
     Route: 048

REACTIONS (5)
  - DEPRESSION [None]
  - DRY MOUTH [None]
  - WEIGHT INCREASED [None]
  - INJECTION SITE ERYTHEMA [None]
  - ABDOMINAL DISCOMFORT [None]
